FAERS Safety Report 15433928 (Version 1)
Quarter: 2018Q3

REPORT INFORMATION
  Report Type: Spontaneous
  Country: JP (occurrence: JP)
  Receive Date: 20180927
  Receipt Date: 20180927
  Transmission Date: 20181010
  Serious: Yes (Other)
  Sender: FDA-Public Use
  Company Number: JP-GLAXOSMITHKLINE-JP2018175052

PATIENT
  Age: 70 Year
  Sex: Female

DRUGS (1)
  1. TERBINAFINE. [Suspect]
     Active Substance: TERBINAFINE
     Indication: TINEA INFECTION
     Dosage: UNK
     Route: 048

REACTIONS (13)
  - Psoriasis [Unknown]
  - Rash pustular [Unknown]
  - Alanine aminotransferase increased [Unknown]
  - C-reactive protein increased [Unknown]
  - Pyrexia [Unknown]
  - Rash [Unknown]
  - Pustular psoriasis [Recovering/Resolving]
  - Hepatic function abnormal [Unknown]
  - White blood cell count increased [Unknown]
  - Pruritus [Unknown]
  - Generalised erythema [Unknown]
  - Aspartate aminotransferase increased [Unknown]
  - Erythema multiforme [Unknown]
